FAERS Safety Report 25947611 (Version 1)
Quarter: 2025Q4

REPORT INFORMATION
  Report Type: Spontaneous
  Country: US (occurrence: US)
  Receive Date: 20251022
  Receipt Date: 20251022
  Transmission Date: 20260117
  Serious: No
  Sender: REGENERON
  Company Number: US-REGENERON PHARMACEUTICALS, INC.-2025-080571

PATIENT
  Sex: Female

DRUGS (2)
  1. LIBTAYO [Suspect]
     Active Substance: CEMIPLIMAB-RWLC
     Indication: Squamous cell carcinoma
     Dosage: UNK MG, Q3W
     Route: 058
     Dates: start: 20250505
  2. AMOXICILLIN [Suspect]
     Active Substance: AMOXICILLIN
     Indication: Rhinitis
     Dosage: 875 MG
     Route: 048
     Dates: start: 202505

REACTIONS (4)
  - Rhinitis [Unknown]
  - Frequent bowel movements [Unknown]
  - Platelet count decreased [Unknown]
  - Off label use [Unknown]

NARRATIVE: CASE EVENT DATE: 20250501
